FAERS Safety Report 20954758 (Version 19)
Quarter: 2024Q1

REPORT INFORMATION
  Report Type: Spontaneous
  Country: CA (occurrence: CA)
  Receive Date: 20220614
  Receipt Date: 20240217
  Transmission Date: 20240410
  Serious: Yes (Other)
  Sender: FDA-Public Use
  Company Number: CA-CELLTRION INC.-2022CA005486

PATIENT

DRUGS (15)
  1. INFLECTRA [Suspect]
     Active Substance: INFLIXIMAB-DYYB
     Indication: Colitis ulcerative
     Dosage: 400 MG, WEEK Q 0, 2, 6 THEN EVERY 8 WEEKS
     Route: 042
     Dates: start: 20220215
  2. INFLECTRA [Suspect]
     Active Substance: INFLIXIMAB-DYYB
     Dosage: 400 MG, WEEK 0, 2, 6 THEN EVERY 8 WEEKS
     Route: 042
     Dates: start: 20220228
  3. INFLECTRA [Suspect]
     Active Substance: INFLIXIMAB-DYYB
     Dosage: 400 MG, WEEK 0, 2, 6 THEN EVERY 8 WEEKS
     Route: 042
     Dates: start: 20220405
  4. INFLECTRA [Suspect]
     Active Substance: INFLIXIMAB-DYYB
     Dosage: 400 MG, WEEK 0, 2, 6 THEN EVERY 8 WEEKS
     Route: 042
     Dates: start: 20220613
  5. INFLECTRA [Suspect]
     Active Substance: INFLIXIMAB-DYYB
     Dosage: 800 MG, RESCUE DOSE
     Route: 042
     Dates: start: 20220713, end: 20220713
  6. INFLECTRA [Suspect]
     Active Substance: INFLIXIMAB-DYYB
     Dosage: 800 MG, EVERY 8 WEEK
     Route: 042
     Dates: start: 20220913
  7. INFLECTRA [Suspect]
     Active Substance: INFLIXIMAB-DYYB
     Dosage: 800 MG, EVERY 8 WEEK
     Route: 042
     Dates: start: 20221102
  8. INFLECTRA [Suspect]
     Active Substance: INFLIXIMAB-DYYB
     Dosage: 800 MG, EVERY 8 WEEK
     Route: 042
     Dates: start: 20221229
  9. INFLECTRA [Suspect]
     Active Substance: INFLIXIMAB-DYYB
     Dosage: 800 MG, EVERY 8 WEEK
     Route: 042
     Dates: start: 20230223
  10. INFLECTRA [Suspect]
     Active Substance: INFLIXIMAB-DYYB
     Dosage: 800 MG, EVERY 8 WEEK
     Route: 042
     Dates: start: 20230810
  11. INFLECTRA [Suspect]
     Active Substance: INFLIXIMAB-DYYB
     Dosage: 800 MG, AFTER 8 WEEK
     Route: 042
     Dates: start: 20231005
  12. INFLECTRA [Suspect]
     Active Substance: INFLIXIMAB-DYYB
     Dosage: 800 MG, EVERY 8 WEEKS (10 WEEKS AND 1 DAY)
     Route: 042
     Dates: start: 20231215
  13. INFLECTRA [Suspect]
     Active Substance: INFLIXIMAB-DYYB
     Dosage: 800 MG, EVERY 8 WEEKS (800MG)
     Route: 042
     Dates: start: 20240209
  14. ENTOCORT [Concomitant]
     Active Substance: BUDESONIDE
     Dosage: 1 DF -DISCONTINUED
     Route: 065
     Dates: end: 2022
  15. ENTOCORT [Concomitant]
     Active Substance: BUDESONIDE
     Dosage: 1 DF
     Route: 065
     Dates: start: 2022

REACTIONS (25)
  - In vitro fertilisation [Unknown]
  - Bronchitis bacterial [Recovering/Resolving]
  - Therapeutic product effect incomplete [Unknown]
  - Cough [Recovering/Resolving]
  - Cough [Recovering/Resolving]
  - Mood swings [Unknown]
  - Anxiety [Unknown]
  - Dysphonia [Not Recovered/Not Resolved]
  - Malaise [Recovering/Resolving]
  - Menstruation delayed [Unknown]
  - Aphthous ulcer [Not Recovered/Not Resolved]
  - Respiratory tract congestion [Recovering/Resolving]
  - Feeling of body temperature change [Recovering/Resolving]
  - Sleep disorder due to a general medical condition [Unknown]
  - COVID-19 [Recovering/Resolving]
  - Pain [Recovering/Resolving]
  - Infusion site extravasation [Recovered/Resolved]
  - Pharyngitis streptococcal [Not Recovered/Not Resolved]
  - Pharyngitis streptococcal [Recovered/Resolved]
  - Nasopharyngitis [Recovering/Resolving]
  - Condition aggravated [Recovered/Resolved]
  - Intentional product use issue [Unknown]
  - Inappropriate schedule of product administration [Unknown]
  - Off label use [Unknown]
  - Off label use [Unknown]

NARRATIVE: CASE EVENT DATE: 20220101
